FAERS Safety Report 4960562-2 (Version None)
Quarter: 2006Q1

REPORT INFORMATION
  Report Type: 
  Country: None (occurrence: None)
  Receive Date: 20060331
  Receipt Date: 20060331
  Transmission Date: 20060701
  Serious: Yes (Other)
  Sender: FDA-Public Use
  Company Number: None

PATIENT
  Sex: Male
  Weight: 122.4712 kg

DRUGS (1)
  1. REMICADE [Suspect]
     Indication: RHEUMATOID ARTHRITIS
     Dosage: 500 MG IV EVERY 6 WEEKS
     Route: 042
     Dates: start: 20020701, end: 20060301

REACTIONS (2)
  - INFUSION RELATED REACTION [None]
  - PRURITUS [None]
